FAERS Safety Report 4877078-4 (Version None)
Quarter: 2006Q1

REPORT INFORMATION
  Report Type: 
  Country: None (occurrence: None)
  Receive Date: 20060110
  Receipt Date: 20050218
  Transmission Date: 20060701
  Serious: Yes (Hospitalization)
  Sender: FDA-Public Use
  Company Number: US-MERCK-0502USA02895

PATIENT
  Age: 60 Year
  Sex: Female
  Weight: 76 kg

DRUGS (5)
  1. VIOXX [Suspect]
     Indication: ARTHRITIS
     Route: 048
     Dates: start: 20010101, end: 20040901
  2. NEURONTIN [Concomitant]
     Route: 065
  3. ELAVIL [Concomitant]
     Route: 065
  4. VICODIN [Concomitant]
     Route: 065
  5. LIPITOR [Concomitant]
     Route: 065

REACTIONS (9)
  - ANAEMIA [None]
  - ARTHROPATHY [None]
  - DACRYOSTENOSIS ACQUIRED [None]
  - DEEP VEIN THROMBOSIS [None]
  - FACIAL PALSY [None]
  - INFLUENZA [None]
  - KNEE OPERATION [None]
  - OEDEMA PERIPHERAL [None]
  - PALPITATIONS [None]
